FAERS Safety Report 6447083-5 (Version None)
Quarter: 2009Q4

REPORT INFORMATION
  Report Type: 
  Country: None (occurrence: None)
  Receive Date: 20091119
  Receipt Date: 20091112
  Transmission Date: 20100525
  Serious: Yes (Other)
  Sender: FDA-Public Use
  Company Number: BR-ABBOTT-07P-020-0423718-00

PATIENT
  Sex: Female
  Weight: 67 kg

DRUGS (8)
  1. HUMIRA [Suspect]
     Indication: RHEUMATOID ARTHRITIS
     Route: 058
     Dates: start: 20060929, end: 20090601
  2. HUMIRA [Suspect]
     Route: 058
  3. PREDNISOLONE [Concomitant]
     Indication: RHEUMATOID ARTHRITIS
     Route: 048
     Dates: start: 20080101, end: 20090801
  4. METHOTREXATE [Concomitant]
     Indication: RHEUMATOID ARTHRITIS
     Route: 048
  5. FERROUS SULFATE TAB [Concomitant]
     Indication: MINERAL SUPPLEMENTATION
     Dates: start: 20071006
  6. FOLIC ACID [Concomitant]
     Indication: VITAMIN SUPPLEMENTATION
     Dates: start: 20071006
  7. IBUPROFEN [Concomitant]
     Indication: PAIN
     Route: 048
     Dates: start: 20090301
  8. BROMAZEPAM [Concomitant]
     Indication: SLEEP DISORDER THERAPY
     Dates: start: 20070101

REACTIONS (4)
  - BONE EROSION [None]
  - FALL [None]
  - HYPERTENSION [None]
  - PAIN IN EXTREMITY [None]
